FAERS Safety Report 8583932-2 (Version None)
Quarter: 2012Q3

REPORT INFORMATION
  Report Type: 
  Country: None (occurrence: None)
  Receive Date: 20120810
  Receipt Date: 20120719
  Transmission Date: 20120928
  Serious: Yes (Hospitalization)
  Sender: FDA-Public Use
  Company Number: US-009507513-2012SP017146

PATIENT
  Sex: Female

DRUGS (3)
  1. NUVARING [Suspect]
     Indication: CONTRACEPTION
     Dosage: UNK
     Dates: start: 20090908, end: 20091001
  2. NUVARING [Suspect]
     Dosage: UNK
  3. NUVARING [Suspect]
     Dosage: UNK
     Dates: start: 20100320, end: 20100401

REACTIONS (6)
  - CONTUSION [None]
  - DEEP VEIN THROMBOSIS [None]
  - ANXIETY DISORDER [None]
  - FATIGUE [None]
  - MYALGIA [None]
  - PANIC DISORDER [None]
